FAERS Safety Report 16027442 (Version 6)
Quarter: 2020Q1

REPORT INFORMATION
  Report Type: Report from Study
  Country: None (occurrence: NL)
  Receive Date: 20190304
  Receipt Date: 20200223
  Transmission Date: 20200409
  Serious: Yes (Hospitalization, Other)
  Sender: FDA-Public Use
  Company Number: NL-ABBVIE-19S-114-2683676-00

PATIENT
  Age: 76 Year
  Sex: Male
  Weight: 75 kg

DRUGS (4)
  1. DUODOPA [Suspect]
     Active Substance: CARBIDOPA\LEVODOPA
     Dosage: MD 3.8, CD 3.1, ED 1.5, CDN 1.7
     Route: 050
     Dates: start: 20180619
  2. DUODOPA [Suspect]
     Active Substance: CARBIDOPA\LEVODOPA
     Indication: PARKINSON^S DISEASE
     Dosage: MD 3.8, CD 3.1, CND 1.5, ED 1.5
     Route: 050
     Dates: start: 20180619
  3. MACROGOL [Concomitant]
     Active Substance: POLYETHYLENE GLYCOLS
     Indication: ABNORMAL FAECES
  4. CLONAZEPAM. [Concomitant]
     Active Substance: CLONAZEPAM
     Indication: ABNORMAL DREAMS

REACTIONS (13)
  - Device programming error [Recovered/Resolved]
  - Cognitive disorder [Not Recovered/Not Resolved]
  - Delirium [Recovered/Resolved]
  - Abnormal dreams [Not Recovered/Not Resolved]
  - Drug ineffective [Not Recovered/Not Resolved]
  - Soft tissue necrosis [Recovered/Resolved]
  - On and off phenomenon [Unknown]
  - Muscle rigidity [Not Recovered/Not Resolved]
  - Gait disturbance [Not Recovered/Not Resolved]
  - Fibroma [Not Recovered/Not Resolved]
  - Memory impairment [Not Recovered/Not Resolved]
  - Stoma site discharge [Unknown]
  - Bradykinesia [Not Recovered/Not Resolved]

NARRATIVE: CASE EVENT DATE: 20190225
